FAERS Safety Report 10451132 (Version 1)
Quarter: 2014Q3

REPORT INFORMATION
  Report Type: Spontaneous
  Country: US (occurrence: US)
  Receive Date: 20140912
  Receipt Date: 20140912
  Transmission Date: 20150326
  Serious: Yes (Hospitalization, Other)
  Sender: FDA-Public Use
  Company Number: US-ABBVIE-14P-163-1280053-00

PATIENT
  Age: 60 Year
  Sex: Male

DRUGS (2)
  1. AXIRON [Suspect]
     Active Substance: TESTOSTERONE
     Indication: PRODUCT USED FOR UNKNOWN INDICATION
     Dates: start: 201303, end: 201304
  2. ANDROGEL [Suspect]
     Active Substance: TESTOSTERONE
     Indication: BLOOD TESTOSTERONE DECREASED
     Dates: start: 201304, end: 201306

REACTIONS (11)
  - Fear [Unknown]
  - Economic problem [Unknown]
  - Cerebrovascular accident [Unknown]
  - Anhedonia [Unknown]
  - Anxiety [Unknown]
  - Impaired work ability [Unknown]
  - Injury [Unknown]
  - Pain [Unknown]
  - Myocardial infarction [Unknown]
  - Physical disability [Unknown]
  - Social problem [Unknown]

NARRATIVE: CASE EVENT DATE: 20130615
